FAERS Safety Report 15416833 (Version 1)
Quarter: 2018Q3

REPORT INFORMATION
  Report Type: Spontaneous
  Country: US (occurrence: US)
  Receive Date: 20180924
  Receipt Date: 20180924
  Transmission Date: 20181010
  Serious: Yes (Other)
  Sender: FDA-Public Use
  Company Number: US-ROCHE-2184471

PATIENT
  Age: 64 Year
  Sex: Female
  Weight: 63.56 kg

DRUGS (5)
  1. HERCEPTIN [Suspect]
     Active Substance: TRASTUZUMAB
     Indication: PRODUCT USED FOR UNKNOWN INDICATION
     Route: 065
     Dates: start: 201707, end: 20180730
  2. BIOTIN [Concomitant]
     Active Substance: BIOTIN
     Route: 065
  3. TAXOL [Concomitant]
     Active Substance: PACLITAXEL
  4. PERJETA [Suspect]
     Active Substance: PERTUZUMAB
     Indication: PRODUCT USED FOR UNKNOWN INDICATION
     Dosage: ONGOING: NO
     Route: 065
     Dates: start: 201707, end: 20180730
  5. SILICA [Concomitant]
     Active Substance: SILICON DIOXIDE
     Route: 065

REACTIONS (17)
  - Hordeolum [Unknown]
  - Trichiasis [Unknown]
  - Meibomian gland dysfunction [Unknown]
  - Depressed mood [Unknown]
  - Neutrophil count decreased [Unknown]
  - Hair growth abnormal [Not Recovered/Not Resolved]
  - Chalazion [Unknown]
  - Lacrimation decreased [Unknown]
  - Rash [Unknown]
  - Urinary retention [Unknown]
  - Cyst [Recovering/Resolving]
  - Neuropathy peripheral [Not Recovered/Not Resolved]
  - Hyperaesthesia [Unknown]
  - Clumsiness [Unknown]
  - Nail growth abnormal [Unknown]
  - Madarosis [Unknown]
  - Blepharitis [Unknown]

NARRATIVE: CASE EVENT DATE: 201804
